FAERS Safety Report 6674617-8 (Version None)
Quarter: 2010Q2

REPORT INFORMATION
  Report Type: 
  Country: None (occurrence: None)
  Receive Date: 20100409
  Receipt Date: 20100402
  Transmission Date: 20101027
  Serious: Yes (Other)
  Sender: FDA-Public Use
  Company Number: CN-ROCHE-695129

PATIENT
  Age: 38 Year
  Sex: Male

DRUGS (2)
  1. XELODA [Suspect]
     Indication: NASOPHARYNGEAL CANCER
     Dosage: 6 COURSES OF TREATMENT
     Route: 048
     Dates: start: 20090101, end: 20090101
  2. CISPLATIN [Concomitant]
     Indication: NASOPHARYNGEAL CANCER
     Dosage: 6 COURSES OF TREATMENT
     Route: 065
     Dates: start: 20090101, end: 20090101

REACTIONS (1)
  - DISEASE RECURRENCE [None]
